FAERS Safety Report 8592778-0 (Version None)
Quarter: 2012Q3

REPORT INFORMATION
  Report Type: 
  Country: None (occurrence: None)
  Receive Date: 20120814
  Receipt Date: 20120807
  Transmission Date: 20120928
  Serious: No
  Sender: FDA-Public Use
  Company Number: DE-ROCHE-1084758

PATIENT
  Sex: Female
  Weight: 54 kg

DRUGS (5)
  1. XOLAIR [Suspect]
     Indication: ASTHMA
     Route: 058
     Dates: start: 20120326
  2. SINGULAIR [Concomitant]
  3. ALVESCO [Concomitant]
  4. BRONCHO SPRAY [Concomitant]
  5. FORMOTEROL FUMARATE [Concomitant]

REACTIONS (1)
  - DEPRESSION [None]
